FAERS Safety Report 7411515-6 (Version None)
Quarter: 2011Q2

REPORT INFORMATION
  Report Type: 
  Country: None (occurrence: None)
  Receive Date: 20110413
  Receipt Date: 20110405
  Transmission Date: 20111010
  Serious: Yes (Other)
  Sender: FDA-Public Use
  Company Number: PHHY2011US10899

PATIENT
  Sex: Male

DRUGS (5)
  1. KLONOPIN [Concomitant]
  2. TRAZODONE [Concomitant]
  3. GLEEVEC [Suspect]
     Indication: GASTRIC CANCER
     Dosage: 400 MG, QD
     Route: 048
     Dates: start: 20110108
  4. CLONAZEPAM [Concomitant]
  5. ZOLOFT [Concomitant]

REACTIONS (11)
  - DIARRHOEA [None]
  - SINUSITIS [None]
  - HYPOCHONDRIASIS [None]
  - DEPRESSION [None]
  - URINARY TRACT INFECTION [None]
  - ABDOMINAL PAIN UPPER [None]
  - ANXIETY [None]
  - BILIARY NEOPLASM [None]
  - RASH [None]
  - RASH PRURITIC [None]
  - NEOPLASM MALIGNANT [None]
